FAERS Safety Report 8766287 (Version 1)
Quarter: 2012Q4

REPORT INFORMATION
  Report Type: 
  Country: BR (occurrence: BR)
  Receive Date: 20120904
  Receipt Date: 20120904
  Transmission Date: 20130627
  Serious: Yes (Death)
  Sender: FDA-Public Use
  Company Number: BR-ROCHE-1115266

PATIENT
  Sex: Female

DRUGS (3)
  1. HERCEPTIN [Suspect]
     Indication: BREAST CANCER METASTATIC
     Route: 065
     Dates: start: 20100119
  2. HERCEPTIN [Suspect]
     Route: 065
     Dates: end: 20100410
  3. TAXOTERE [Concomitant]

REACTIONS (1)
  - Death [Fatal]
